FAERS Safety Report 21549014 (Version 1)
Quarter: 2022Q4

REPORT INFORMATION
  Report Type: Spontaneous
  Country: US (occurrence: US)
  Receive Date: 20221103
  Receipt Date: 20221103
  Transmission Date: 20230113
  Serious: No
  Sender: FDA-Public Use
  Company Number: US-Millicent Holdings Ltd.-MILL20220343

PATIENT
  Age: 55 Year
  Sex: Female

DRUGS (2)
  1. FEMRING [Suspect]
     Active Substance: ESTRADIOL ACETATE
     Indication: Menopause
     Dosage: UNKNOWN
     Route: 067
  2. FEMRING [Suspect]
     Active Substance: ESTRADIOL ACETATE
     Indication: Hormone replacement therapy

REACTIONS (2)
  - Complication of device removal [Not Recovered/Not Resolved]
  - Product use issue [None]

NARRATIVE: CASE EVENT DATE: 20221001
